FAERS Safety Report 4526690-0 (Version None)
Quarter: 2004Q4

REPORT INFORMATION
  Report Type: 
  Country: None (occurrence: None)
  Receive Date: 20041213
  Receipt Date: 20041130
  Transmission Date: 20050328
  Serious: Yes (Hospitalization, Other)
  Sender: FDA-Public Use
  Company Number: 2004102554

PATIENT
  Age: 63 Year
  Sex: Male
  Weight: 82.5547 kg

DRUGS (7)
  1. CELEBREX [Suspect]
     Indication: MONARTHRITIS
     Dosage: 200 MG (200 MG, 1 IN 1 D), ORAL
     Route: 048
     Dates: start: 19980101
  2. LANSOPRAZOLE [Concomitant]
  3. ASPIRIN [Concomitant]
  4. ATORVASTATIN (ATORVASTATIN) [Concomitant]
  5. CETIRIZINE HCL [Concomitant]
  6. DOXAZOSIN MESILATE (DOXAZOSIN MEXILATE) [Concomitant]
  7. ANTIHYPERTENSIVES (ANTIHYPERTENSIVES) [Concomitant]

REACTIONS (4)
  - ARTHRITIS [None]
  - CORONARY ARTERY THROMBOSIS [None]
  - MYOCARDIAL INFARCTION [None]
  - STENT OCCLUSION [None]
